FAERS Safety Report 25009657 (Version 2)
Quarter: 2025Q3

REPORT INFORMATION
  Report Type: Report from Study
  Country: JP (occurrence: JP)
  Receive Date: 20250225
  Receipt Date: 20250904
  Transmission Date: 20251021
  Serious: Yes (Hospitalization)
  Sender: MERCK SHARP & DOHME LLC
  Company Number: JP-ASTRAZENECA-202411GLO014169JP

PATIENT
  Age: 53 Year
  Sex: Female
  Weight: 61 kg

DRUGS (19)
  1. PEMBROLIZUMAB [Suspect]
     Active Substance: PEMBROLIZUMAB
     Indication: Triple negative breast cancer
     Route: 042
     Dates: start: 20240828, end: 20241106
  2. BETAMETHASONE DIPROPIONATE [Concomitant]
     Active Substance: BETAMETHASONE DIPROPIONATE
     Indication: Triple negative breast cancer
     Route: 065
  3. CALCIUM CHLORIDE\POTASSIUM CHLORIDE\SODIUM ACETATE\SODIUM CHLORIDE [Concomitant]
     Active Substance: CALCIUM CHLORIDE\POTASSIUM CHLORIDE\SODIUM ACETATE\SODIUM CHLORIDE
     Indication: Hepatic function abnormal
     Route: 042
     Dates: start: 20241118, end: 20241118
  4. HEPARINOID [Concomitant]
     Indication: Erythema
     Route: 061
     Dates: start: 20241002
  5. METOCLOPRAMIDE HYDROCHLORIDE [Concomitant]
     Active Substance: METOCLOPRAMIDE HYDROCHLORIDE
     Indication: Hepatic function abnormal
     Route: 042
     Dates: start: 20241118, end: 20241118
  6. PALONOSETRON [Concomitant]
     Active Substance: PALONOSETRON
     Indication: Triple negative breast cancer
  7. FEXOFENADINE HYDROCHLORIDE [Concomitant]
     Active Substance: FEXOFENADINE HYDROCHLORIDE
     Indication: Triple negative breast cancer
  8. PYRIDOXINE HYDROCHLORIDE [Concomitant]
     Active Substance: PYRIDOXINE HYDROCHLORIDE
     Indication: Hepatic function abnormal
     Route: 042
     Dates: start: 20241119
  9. CYSTEINE [Concomitant]
     Active Substance: CYSTEINE
     Indication: Hepatic function abnormal
     Route: 042
     Dates: start: 20241118
  10. FEXOFENADINE HYDROCHLORIDE [Concomitant]
     Active Substance: FEXOFENADINE HYDROCHLORIDE
     Indication: Erythema
     Route: 048
     Dates: start: 20240904
  11. SOLACET D [Concomitant]
     Indication: Hepatic function abnormal
     Route: 042
     Dates: start: 20241118
  12. DEXAMETHASONE SODIUM PHOSPHATE [Concomitant]
     Active Substance: DEXAMETHASONE SODIUM PHOSPHATE
     Indication: Triple negative breast cancer
  13. METOCLOPRAMIDE [Concomitant]
     Active Substance: METOCLOPRAMIDE
     Indication: Triple negative breast cancer
  14. DEXCHLORPHENIRAMINE MALEATE [Concomitant]
     Active Substance: DEXCHLORPHENIRAMINE MALEATE
     Indication: Triple negative breast cancer
  15. FAMOTIDINE [Concomitant]
     Active Substance: FAMOTIDINE
     Indication: Triple negative breast cancer
  16. PACLITAXEL [Suspect]
     Active Substance: PACLITAXEL
     Indication: Triple negative breast cancer
     Route: 042
     Dates: start: 20240828, end: 20241204
  17. IBUPROFEN [Concomitant]
     Active Substance: IBUPROFEN
     Indication: Migraine
     Dates: start: 2014
  18. CARBOPLATIN [Suspect]
     Active Substance: CARBOPLATIN
     Indication: Triple negative breast cancer
     Route: 042
     Dates: start: 20240828, end: 20241113
  19. CARBOPLATIN [Suspect]
     Active Substance: CARBOPLATIN
     Indication: Triple negative breast cancer
     Route: 042
     Dates: start: 20241204, end: 20241204

REACTIONS (2)
  - Adrenal insufficiency [Recovering/Resolving]
  - Hepatic function abnormal [Recovering/Resolving]

NARRATIVE: CASE EVENT DATE: 20241120
